FAERS Safety Report 8202163-9 (Version None)
Quarter: 2012Q1

REPORT INFORMATION
  Report Type: 
  Country: None (occurrence: None)
  Receive Date: 20120312
  Receipt Date: 20120309
  Transmission Date: 20120608
  Serious: Yes (Other)
  Sender: FDA-Public Use
  Company Number: US-PFIZER INC-2012063654

PATIENT
  Sex: Female
  Weight: 79.365 kg

DRUGS (7)
  1. PRAVACHOL [Suspect]
     Indication: BLOOD CHOLESTEROL INCREASED
     Dosage: UNK
  2. PRAVASTATIN [Suspect]
     Indication: BLOOD CHOLESTEROL INCREASED
     Dosage: UNK
     Dates: start: 20120101, end: 20120101
  3. PROCARDIA [Concomitant]
     Indication: HYPERTENSION
     Dosage: 10 MG, 3X/DAY
  4. AVAPRO [Concomitant]
     Indication: HYPERTENSION
     Dosage: 200 MG, DAILY
  5. ATORVASTATIN CALCIUM [Suspect]
     Indication: BLOOD CHOLESTEROL INCREASED
     Dosage: 40 MG, DAILY
     Dates: start: 20120101, end: 20120101
  6. POTASSIUM [Concomitant]
     Dosage: UNK
  7. HYDROCHLOROTHIAZIDE [Concomitant]
     Dosage: UNK

REACTIONS (9)
  - IRRITABILITY [None]
  - DRUG INEFFECTIVE [None]
  - MALAISE [None]
  - INSOMNIA [None]
  - ANGER [None]
  - PAIN IN EXTREMITY [None]
  - PAIN [None]
  - APHAGIA [None]
  - FEELING ABNORMAL [None]
